FAERS Safety Report 8431916-7 (Version None)
Quarter: 2012Q2

REPORT INFORMATION
  Report Type: 
  Country: None (occurrence: None)
  Receive Date: 20120606
  Receipt Date: 20120528
  Transmission Date: 20120825
  Serious: Yes (Other)
  Sender: FDA-Public Use
  Company Number: AUR-APL-2012-02413

PATIENT
  Age: 59 Year
  Sex: Female

DRUGS (9)
  1. BOCEPREVIR (BOCEPREVIR) [Suspect]
     Indication: HEPATITIS C
     Dosage: 2400 MG (800  MG, 1 IN 1 D), ORAL
     Route: 048
     Dates: start: 20110819
  2. RIBAVIRIN [Suspect]
     Indication: PRODUCT USED FOR UNKNOWN INDICATION
  3. CITALOPRAM HYDROBROMIDE [Concomitant]
  4. LEVOTHYROXINE SODIUM [Concomitant]
  5. TRAMADOL HCL [Concomitant]
  6. PEGINTERFERON ALFA-2B [Suspect]
     Indication: PRODUCT USED FOR UNKNOWN INDICATION
  7. THIAMINE HCL [Concomitant]
  8. ACETAMINOPHEN W/ CODEINE [Concomitant]
  9. LANSOPRAZOLE [Concomitant]

REACTIONS (3)
  - ANORECTAL DISCOMFORT [None]
  - CANDIDIASIS [None]
  - PSORIASIS [None]
